FAERS Safety Report 24155224 (Version 1)
Quarter: 2024Q3

REPORT INFORMATION
  Report Type: Spontaneous
  Country: US (occurrence: US)
  Receive Date: 20240731
  Receipt Date: 20240731
  Transmission Date: 20241016
  Serious: Yes (Death, Other)
  Sender: ABBVIE
  Company Number: US-ABBVIE-5859143

PATIENT
  Sex: Female

DRUGS (1)
  1. RINVOQ [Suspect]
     Active Substance: UPADACITINIB
     Indication: Colitis
     Route: 048

REACTIONS (3)
  - Obstruction [Fatal]
  - Choking [Fatal]
  - Ovarian cancer [Not Recovered/Not Resolved]
